FAERS Safety Report 16027367 (Version 5)
Quarter: 2019Q2

REPORT INFORMATION
  Report Type: Spontaneous
  Country: JP (occurrence: JP)
  Receive Date: 20190304
  Receipt Date: 20190409
  Transmission Date: 20190711
  Serious: Yes (Death, Life-Threatening, Hospitalization, Disabling, Other)
  Sender: FDA-Public Use
  Company Number: JP-BRISTOL-MYERS SQUIBB COMPANY-BMS-2019-016135

PATIENT
  Age: 71 Year
  Sex: Female

DRUGS (3)
  1. INSULIN HUMAN [Concomitant]
     Active Substance: INSULIN HUMAN
     Indication: TYPE 2 DIABETES MELLITUS
     Dosage: UNK
     Route: 042
  2. YERVOY [Suspect]
     Active Substance: IPILIMUMAB
     Indication: METASTATIC RENAL CELL CARCINOMA
     Dosage: 41 MILLIGRAM, Q3WK
     Route: 041
     Dates: start: 20180925, end: 20181127
  3. OPDIVO [Suspect]
     Active Substance: NIVOLUMAB
     Indication: METASTATIC RENAL CELL CARCINOMA
     Dosage: 240 MILLIGRAM
     Route: 041
     Dates: start: 20180925, end: 20181127

REACTIONS (7)
  - Diabetic ketoacidosis [Recovered/Resolved]
  - Hypoalbuminaemia [Fatal]
  - Disseminated intravascular coagulation [Fatal]
  - Oesophagitis [Fatal]
  - Colitis [Fatal]
  - Cerebral infarction [Fatal]
  - Platelet count decreased [Recovered/Resolved with Sequelae]

NARRATIVE: CASE EVENT DATE: 20181206
